FAERS Safety Report 15335532 (Version 1)
Quarter: 2018Q3

REPORT INFORMATION
  Report Type: Spontaneous
  Country: US (occurrence: US)
  Receive Date: 20180827
  Receipt Date: 20180827
  Transmission Date: 20181010
  Serious: No
  Sender: FDA-Public Use
  Company Number: None

PATIENT
  Age: 60 Year
  Sex: Female

DRUGS (1)
  1. XALKORI [Suspect]
     Active Substance: CRIZOTINIB
     Route: 048

REACTIONS (3)
  - Disease progression [None]
  - Metastases to central nervous system [None]
  - Non-small cell lung cancer [None]

NARRATIVE: CASE EVENT DATE: 20180823
